FAERS Safety Report 21612035 (Version 2)
Quarter: 2022Q4

REPORT INFORMATION
  Report Type: Spontaneous
  Country: US (occurrence: US)
  Receive Date: 20221118
  Receipt Date: 20221212
  Transmission Date: 20230112
  Serious: No
  Sender: FDA-Public Use
  Company Number: US-SA-SAC20221115001762

PATIENT
  Age: 29 Year
  Sex: Female

DRUGS (1)
  1. DUPIXENT [Suspect]
     Active Substance: DUPILUMAB
     Dosage: 300 MG  FREQUENCY: OTHER
     Route: 058

REACTIONS (3)
  - Eczema [Unknown]
  - Eye pruritus [Unknown]
  - Dry eye [Unknown]
